FAERS Safety Report 8865961 (Version 1)
Quarter: 2012Q4

REPORT INFORMATION
  Report Type: 
  Country: US (occurrence: US)
  Receive Date: 20121025
  Receipt Date: 20121025
  Transmission Date: 20130627
  Serious: No
  Sender: FDA-Public Use
  Company Number: US-ABBOTT-12P-163-0960537-00

PATIENT
  Sex: Female

DRUGS (1)
  1. LUPRON DEPOT [Suspect]
     Indication: PRODUCT USED FOR UNKNOWN INDICATION
     Dates: start: 201202, end: 201205

REACTIONS (7)
  - Amnesia [Unknown]
  - Hot flush [Unknown]
  - Mood swings [Unknown]
  - Inflammation [Unknown]
  - Menstruation irregular [Unknown]
  - Abdominal pain [Unknown]
  - Mobility decreased [Unknown]
